FAERS Safety Report 18653396 (Version 4)
Quarter: 2021Q1

REPORT INFORMATION
  Report Type: Report from Study
  Country: CA (occurrence: CA)
  Receive Date: 20201223
  Receipt Date: 20210330
  Transmission Date: 20210419
  Serious: Yes (Hospitalization, Other)
  Sender: FDA-Public Use
  Company Number: CA-TAKEDA-2020TUS034778

PATIENT
  Age: 68 Year
  Sex: Male

DRUGS (10)
  1. IXAZOMIB [Suspect]
     Active Substance: IXAZOMIB
     Dosage: 3 MILLIGRAM
     Route: 048
     Dates: start: 20201215, end: 20210201
  2. REVLIMID [Concomitant]
     Active Substance: LENALIDOMIDE
     Indication: PLASMA CELL MYELOMA
     Dosage: 5 MILLIGRAM
     Route: 065
     Dates: start: 20200103
  3. REVLIMID [Concomitant]
     Active Substance: LENALIDOMIDE
     Dosage: 5 MILLIGRAM
     Route: 065
     Dates: start: 20200108
  4. APIXABAN [Concomitant]
     Active Substance: APIXABAN
     Dosage: 5 MILLIGRAM, BID
     Route: 065
  5. DEXAMETHASONE. [Concomitant]
     Active Substance: DEXAMETHASONE
     Dosage: 4 MILLIGRAM, QD
     Route: 065
  6. IXAZOMIB [Suspect]
     Active Substance: IXAZOMIB
     Dosage: 3 MILLIGRAM
     Route: 048
     Dates: start: 20201019
  7. ACYCLOVIR                          /00587301/ [Concomitant]
     Active Substance: ACYCLOVIR
     Dosage: UNK, QD
     Route: 065
  8. IXAZOMIB [Suspect]
     Active Substance: IXAZOMIB
     Indication: PLASMA CELL MYELOMA
     Dosage: 3 MILLIGRAM
     Route: 048
     Dates: start: 20200526
  9. IXAZOMIB [Suspect]
     Active Substance: IXAZOMIB
     Dosage: 4 MILLIGRAM
     Route: 048
     Dates: start: 20201111
  10. EPREX [Concomitant]
     Active Substance: ERYTHROPOIETIN
     Dosage: UNK, 1/WEEK
     Route: 065
     Dates: start: 20200127

REACTIONS (18)
  - Vomiting [Unknown]
  - Skin discolouration [Recovering/Resolving]
  - Weight increased [Unknown]
  - Scab [Unknown]
  - Renal impairment [Unknown]
  - Blister [Unknown]
  - Skin lesion [Unknown]
  - Joint swelling [Recovered/Resolved]
  - Peripheral swelling [Recovered/Resolved]
  - Hypoaesthesia [Unknown]
  - Lip swelling [Unknown]
  - Diarrhoea [Unknown]
  - Nausea [Unknown]
  - Increased appetite [Recovering/Resolving]
  - Conjunctivitis [Unknown]
  - Periorbital oedema [Unknown]
  - Fatigue [Unknown]
  - Skin exfoliation [Not Recovered/Not Resolved]
